FAERS Safety Report 22163456 (Version 1)
Quarter: 2023Q2

REPORT INFORMATION
  Report Type: Spontaneous
  Country: GB (occurrence: GB)
  Receive Date: 20230401
  Receipt Date: 20230401
  Transmission Date: 20230721
  Serious: Yes (Other)
  Sender: FDA-Public Use
  Company Number: None

PATIENT
  Age: 73 Year
  Sex: Female
  Weight: 68 kg

DRUGS (2)
  1. DOXAZOSIN [Suspect]
     Active Substance: DOXAZOSIN MESYLATE
     Indication: Hypertension
     Dosage: OD
     Dates: start: 202212, end: 202302
  2. IRBESARTAN [Concomitant]
     Active Substance: IRBESARTAN
     Indication: Hypertension

REACTIONS (2)
  - Medication error [Unknown]
  - Chest pain [Recovering/Resolving]

NARRATIVE: CASE EVENT DATE: 20230101
